FAERS Safety Report 13136868 (Version 20)
Quarter: 2022Q2

REPORT INFORMATION
  Report Type: Spontaneous
  Country: BR (occurrence: BR)
  Receive Date: 20170123
  Receipt Date: 20220628
  Transmission Date: 20220721
  Serious: Yes (Other)
  Sender: FDA-Public Use
  Company Number: BR-GLAXOSMITHKLINE-BR2016GSK154005

PATIENT

DRUGS (2)
  1. BENLYSTA [Suspect]
     Active Substance: BELIMUMAB
     Indication: Systemic lupus erythematosus
     Dosage: 680 MG, UNK
     Route: 042
     Dates: start: 20160411
  2. VITAMIN D [Concomitant]
     Active Substance: VITAMIN D NOS
     Indication: Product used for unknown indication
     Dosage: UNK

REACTIONS (18)
  - Lupus nephritis [Recovered/Resolved]
  - Complement factor C3 decreased [Recovered/Resolved]
  - Protein urine present [Recovered/Resolved]
  - Weight fluctuation [Unknown]
  - Oropharyngeal pain [Unknown]
  - Sinusitis [Unknown]
  - Influenza [Unknown]
  - Abdominal pain [Recovered/Resolved]
  - Panic reaction [Unknown]
  - Panic disorder [Recovered/Resolved]
  - Nausea [Unknown]
  - Inappropriate schedule of product administration [Unknown]
  - Circumstance or information capable of leading to medication error [Recovered/Resolved]
  - Product dose omission issue [Not Recovered/Not Resolved]
  - Overdose [Unknown]
  - Product availability issue [Unknown]
  - Nasopharyngitis [Unknown]
  - Social problem [Unknown]
